FAERS Safety Report 23424363 (Version 3)
Quarter: 2025Q2

REPORT INFORMATION
  Report Type: Report from Study
  Country: DE (occurrence: DE)
  Receive Date: 20240120
  Receipt Date: 20250508
  Transmission Date: 20250716
  Serious: Yes (Other)
  Sender: ALEXION PHARMACEUTICALS
  Company Number: 2023A090415

PATIENT
  Age: 70 Year
  Weight: 70 kg

DRUGS (4)
  1. FULVESTRANT [Suspect]
     Active Substance: FULVESTRANT
     Indication: Hormone receptor positive HER2 negative breast cancer
     Dosage: 250 MG, QMO (DAILY DOSE)
  2. KISQALI [Suspect]
     Active Substance: RIBOCICLIB SUCCINATE
     Indication: Hormone receptor positive HER2 negative breast cancer
     Dosage: 600 MG, QD (DAILY DOSE, SCHEMA 21 DAYS INTAKE, 7 DAYS PAUSE)
  3. KISQALI [Suspect]
     Active Substance: RIBOCICLIB SUCCINATE
     Indication: Hormone receptor positive HER2 negative breast cancer
     Dosage: 400 MG, QD (DAILY DOSE, SCHEMA 21 DAYS INTAKE, 7 DAYS PAUSE)
  4. KISQALI [Suspect]
     Active Substance: RIBOCICLIB SUCCINATE
     Dosage: 400 MG, QD (DAILY DOSE, SCHEMA 21 DAYS INTAKE, 7 DAYS PAUSE)

REACTIONS (2)
  - Oesophageal candidiasis [Recovered/Resolved]
  - Off label use [Unknown]
